FAERS Safety Report 8059108-4 (Version None)
Quarter: 2012Q1

REPORT INFORMATION
  Report Type: 
  Country: None (occurrence: None)
  Receive Date: 20120120
  Receipt Date: 20120119
  Transmission Date: 20120608
  Serious: Yes (Other)
  Sender: FDA-Public Use
  Company Number: US-BAYER-2012-006044

PATIENT
  Age: 37 Year
  Sex: Female

DRUGS (3)
  1. INTERFERON BETA-1B [Suspect]
     Dosage: 8 MIU, QOD
     Route: 058
     Dates: start: 20110912
  2. INTERFERON BETA-1B [Suspect]
     Dosage: UNK
     Dates: start: 20100801, end: 20110301
  3. INTERFERON BETA-1B [Suspect]
     Indication: RELAPSING-REMITTING MULTIPLE SCLEROSIS
     Dosage: UNK
     Dates: start: 20090823, end: 20100622

REACTIONS (7)
  - PARAESTHESIA [None]
  - PAIN IN EXTREMITY [None]
  - ARTHRALGIA [None]
  - SYNOVIAL CYST [None]
  - HYPOAESTHESIA [None]
  - OEDEMA PERIPHERAL [None]
  - JOINT SWELLING [None]
